FAERS Safety Report 23425197 (Version 1)
Quarter: 2024Q1

REPORT INFORMATION
  Report Type: Spontaneous
  Country: FR (occurrence: FR)
  Receive Date: 20240121
  Receipt Date: 20240121
  Transmission Date: 20240410
  Serious: Yes (Other)
  Sender: FDA-Public Use
  Company Number: FR-NOVOPROD-1163169

PATIENT
  Age: 50 Year
  Sex: Female

DRUGS (2)
  1. SAXENDA [Suspect]
     Active Substance: LIRAGLUTIDE
     Indication: Product used for unknown indication
     Dosage: 1.2 MG
  2. SAXENDA [Suspect]
     Active Substance: LIRAGLUTIDE
     Dosage: DOSE DECREASED

REACTIONS (1)
  - Ventricular extrasystoles [Recovering/Resolving]
